FAERS Safety Report 7336231-0 (Version None)
Quarter: 2011Q1

REPORT INFORMATION
  Report Type: 
  Country: None (occurrence: None)
  Receive Date: 20110307
  Receipt Date: 20110221
  Transmission Date: 20110831
  Serious: Yes (Hospitalization)
  Sender: FDA-Public Use
  Company Number: BR-BAYER-200914383LA

PATIENT
  Sex: Female

DRUGS (4)
  1. DIAMOX [Concomitant]
     Indication: HYDROCEPHALUS
     Dosage: 250 MG, BID
     Route: 048
     Dates: start: 20010101
  2. ARADOIS H [Concomitant]
     Indication: HYPERTENSION
     Route: 048
     Dates: start: 20030101
  3. BETAFERON [Suspect]
     Indication: SECONDARY PROGRESSIVE MULTIPLE SCLEROSIS
     Dosage: 9.6 MIU, QOD
     Route: 058
     Dates: start: 20070301, end: 20110201
  4. FLUOXETINE HCL [Concomitant]
     Indication: ANXIETY
     Route: 048
     Dates: start: 20090101

REACTIONS (11)
  - PAIN IN EXTREMITY [None]
  - GAIT DISTURBANCE [None]
  - HYPERTENSION [None]
  - DIABETES MELLITUS [None]
  - CHOKING [None]
  - MUSCLE SPASMS [None]
  - LOSS OF CONSCIOUSNESS [None]
  - MULTIPLE SCLEROSIS [None]
  - INJECTION SITE PAIN [None]
  - HEADACHE [None]
  - MUSCULOSKELETAL STIFFNESS [None]
